FAERS Safety Report 8915421 (Version 1)
Quarter: 2012Q4

REPORT INFORMATION
  Report Type: 
  Country: US (occurrence: US)
  Receive Date: 20121119
  Receipt Date: 20121119
  Transmission Date: 20130627
  Serious: No
  Sender: FDA-Public Use
  Company Number: US-ASTRAZENECA-2012SE84102

PATIENT
  Age: 37 Year
  Sex: Female

DRUGS (2)
  1. NEXIUM [Suspect]
     Route: 048
  2. PRILOSEC OTC [Suspect]
     Route: 048

REACTIONS (7)
  - Chronic fatigue syndrome [Unknown]
  - Fibromyalgia [Unknown]
  - Epstein-Barr virus infection [Unknown]
  - Malaise [Unknown]
  - Stress [Unknown]
  - Insomnia [Unknown]
  - Drug effect decreased [Unknown]
